FAERS Safety Report 8219250-1 (Version None)
Quarter: 2012Q1

REPORT INFORMATION
  Report Type: 
  Country: None (occurrence: None)
  Receive Date: 20120319
  Receipt Date: 20120306
  Transmission Date: 20120608
  Serious: Yes (Other)
  Sender: FDA-Public Use
  Company Number: DE-ELI_LILLY_AND_COMPANY-DE201203001838

PATIENT
  Age: 75 Year
  Sex: Female

DRUGS (10)
  1. METOPROLOL TARTRATE AND HYDROCHLOROTHIAZIDE [Concomitant]
     Dosage: UNK, UNKNOWN
     Route: 048
  2. MOXONIDINE [Concomitant]
     Dosage: 0.3 MG, UNKNOWN
     Route: 048
  3. FERROUS SULFATE TAB [Concomitant]
     Dosage: 2 DF, UNKNOWN
     Route: 048
     Dates: start: 20100601
  4. CYMBALTA [Suspect]
     Dosage: 30 MG, UNKNOWN
     Route: 048
     Dates: start: 20080701, end: 20111201
  5. PANTOPRAZOLE [Concomitant]
     Dosage: UNK, UNKNOWN
     Route: 048
  6. HYDROCHLOROTHIAZIDE [Concomitant]
     Dosage: 12.5 MG, UNKNOWN
     Route: 048
  7. AMLODIPINE [Concomitant]
     Dosage: 5 MG, UNKNOWN
     Route: 048
  8. SIMVASTATIN [Concomitant]
     Dosage: 20 MG, UNKNOWN
     Route: 048
  9. ASPIRIN [Concomitant]
     Dosage: 100 MG, UNKNOWN
     Route: 048
     Dates: start: 20100101
  10. LOSARTAN POTASSIUM [Concomitant]
     Dosage: 100 MG, UNKNOWN
     Route: 048

REACTIONS (2)
  - GASTROINTESTINAL ANGIODYSPLASIA HAEMORRHAGIC [None]
  - HAEMOGLOBIN DECREASED [None]
